FAERS Safety Report 7527016-0 (Version None)
Quarter: 2011Q2

REPORT INFORMATION
  Report Type: 
  Country: None (occurrence: None)
  Receive Date: 20110606
  Receipt Date: 20100519
  Transmission Date: 20111010
  Serious: No
  Sender: FDA-Public Use
  Company Number: US-BAYER-201023539NA

PATIENT

DRUGS (5)
  1. AVANDIA [Concomitant]
  2. LIPITOR [Concomitant]
  3. AVELOX [Suspect]
     Indication: BRONCHITIS
     Dosage: UNK
  4. ACE INHIBITOR NOS [Concomitant]
     Dosage: UNK
  5. OVER THE COUNTER COLD MEDICAITON [Concomitant]
     Indication: NASOPHARYNGITIS

REACTIONS (3)
  - DYSPNOEA [None]
  - IRRITABILITY [None]
  - CONFUSIONAL STATE [None]
